FAERS Safety Report 19027423 (Version 3)
Quarter: 2021Q2

REPORT INFORMATION
  Report Type: Spontaneous
  Country: US (occurrence: US)
  Receive Date: 20210319
  Receipt Date: 20210623
  Transmission Date: 20210717
  Serious: Yes (Hospitalization, Other)
  Sender: FDA-Public Use
  Company Number: US-ASTRAZENECA-2021A132618

PATIENT
  Age: 21820 Day
  Sex: Male
  Weight: 137 kg

DRUGS (59)
  1. FARXIGA [Suspect]
     Active Substance: DAPAGLIFLOZIN PROPANEDIOL
     Indication: TYPE 2 DIABETES MELLITUS
     Route: 048
     Dates: start: 20180904, end: 20190717
  2. ACCOLATE [Concomitant]
     Active Substance: ZAFIRLUKAST
  3. CLINDAMYCIN. [Concomitant]
     Active Substance: CLINDAMYCIN
  4. CEPHALEXIN. [Concomitant]
     Active Substance: CEPHALEXIN
  5. SULFAMETHOXAZOLE [Concomitant]
     Active Substance: SULFAMETHOXAZOLE
  6. INCRUSE ELLIPTA [Concomitant]
     Active Substance: UMECLIDINIUM BROMIDE
  7. PRAMIPEXOLE. [Concomitant]
     Active Substance: PRAMIPEXOLE
  8. LACTULOSE. [Concomitant]
     Active Substance: LACTULOSE
  9. CIPROFLOXACIN. [Concomitant]
     Active Substance: CIPROFLOXACIN
  10. METFORMIN [Concomitant]
     Active Substance: METFORMIN HYDROCHLORIDE
  11. FISH OIL [Concomitant]
     Active Substance: FISH OIL
  12. PREDNISONE. [Concomitant]
     Active Substance: PREDNISONE
  13. KETOCONAZOLE. [Concomitant]
     Active Substance: KETOCONAZOLE
  14. METOPROLOL. [Concomitant]
     Active Substance: METOPROLOL
  15. MIRALAX [Concomitant]
     Active Substance: POLYETHYLENE GLYCOL 3350
  16. DOXYCYCLINE. [Concomitant]
     Active Substance: DOXYCYCLINE
  17. ZOSYN [Concomitant]
     Active Substance: PIPERACILLIN SODIUM\TAZOBACTAM SODIUM
  18. BENZONATATE. [Concomitant]
     Active Substance: BENZONATATE
  19. NEXIUM [Concomitant]
     Active Substance: ESOMEPRAZOLE MAGNESIUM
  20. FARXIGA [Suspect]
     Active Substance: DAPAGLIFLOZIN PROPANEDIOL
     Indication: BLOOD PRESSURE DECREASED
     Route: 048
     Dates: start: 20180904, end: 20190717
  21. MUCINEX [Concomitant]
     Active Substance: GUAIFENESIN
  22. FLOMAX [Concomitant]
     Active Substance: TAMSULOSIN HYDROCHLORIDE
  23. FISH OIL [Concomitant]
     Active Substance: FISH OIL
  24. AZITHROMYCIN ANHYDROUS. [Concomitant]
     Active Substance: AZITHROMYCIN ANHYDROUS
  25. CYMBALTA [Concomitant]
     Active Substance: DULOXETINE HYDROCHLORIDE
  26. ACETYLCYSTEINE. [Concomitant]
     Active Substance: ACETYLCYSTEINE
  27. SPIRONOLACTONE. [Concomitant]
     Active Substance: SPIRONOLACTONE
  28. BUPROPION. [Concomitant]
     Active Substance: BUPROPION
  29. SPIRIVA [Concomitant]
     Active Substance: TIOTROPIUM BROMIDE MONOHYDRATE
  30. FUROSEMIDE. [Concomitant]
     Active Substance: FUROSEMIDE
  31. VENLAFAXINE [Concomitant]
     Active Substance: VENLAFAXINE HYDROCHLORIDE
  32. INCRUSE ELLIPTA [Concomitant]
     Active Substance: UMECLIDINIUM BROMIDE
  33. ALBUTEROL. [Concomitant]
     Active Substance: ALBUTEROL
  34. BUDESONIDE. [Concomitant]
     Active Substance: BUDESONIDE
  35. NYSTATIN. [Concomitant]
     Active Substance: NYSTATIN
  36. VITAMIN D3 [Concomitant]
     Active Substance: CHOLECALCIFEROL
  37. OXYCONTIN [Concomitant]
     Active Substance: OXYCODONE HYDROCHLORIDE
  38. PANTOPRAZOLE [Concomitant]
     Active Substance: PANTOPRAZOLE
  39. IBUPROFEN. [Concomitant]
     Active Substance: IBUPROFEN
  40. SYMBICORT [Concomitant]
     Active Substance: BUDESONIDE\FORMOTEROL FUMARATE DIHYDRATE
  41. SENNA [Concomitant]
     Active Substance: SENNA LEAF\SENNOSIDES\SENNOSIDES A AND B
  42. CYCLOBENZAPRINE. [Concomitant]
     Active Substance: CYCLOBENZAPRINE
  43. ACIDOPHILUS PROBIOTIC [Concomitant]
     Active Substance: LACTOBACILLUS ACIDOPHILUS
  44. XYZAL [Concomitant]
     Active Substance: LEVOCETIRIZINE DIHYDROCHLORIDE
  45. KETOROLAC [Concomitant]
     Active Substance: KETOROLAC TROMETHAMINE
  46. TIOTROPIUM [Concomitant]
     Active Substance: TIOTROPIUM
  47. PENICILLIN [Concomitant]
     Active Substance: PENICILLIN
  48. LEVAQUIN [Concomitant]
     Active Substance: LEVOFLOXACIN
  49. TESTOSTERONE. [Concomitant]
     Active Substance: TESTOSTERONE
  50. SPIRONOLACTONE. [Concomitant]
     Active Substance: SPIRONOLACTONE
  51. BENZONATATE. [Concomitant]
     Active Substance: BENZONATATE
  52. XOPENEX [Concomitant]
     Active Substance: LEVALBUTEROL HYDROCHLORIDE
  53. LEVOFLOXACIN. [Concomitant]
     Active Substance: LEVOFLOXACIN
  54. FARXIGA [Suspect]
     Active Substance: DAPAGLIFLOZIN PROPANEDIOL
     Indication: WEIGHT DECREASED
     Route: 048
     Dates: start: 20180904, end: 20190717
  55. TOBRADEX [Concomitant]
     Active Substance: DEXAMETHASONE\TOBRAMYCIN
  56. NOVOLOG [Concomitant]
     Active Substance: INSULIN ASPART
  57. MORPHINE [Concomitant]
     Active Substance: MORPHINE
  58. FERROUS SULFATE. [Concomitant]
     Active Substance: FERROUS SULFATE
  59. ZAFIRLUKAST. [Concomitant]
     Active Substance: ZAFIRLUKAST

REACTIONS (7)
  - Scrotal cellulitis [Unknown]
  - Rectal abscess [Unknown]
  - Fournier^s gangrene [Unknown]
  - Scrotal gangrene [Unknown]
  - Perirectal abscess [Unknown]
  - Colonic abscess [Unknown]
  - Pelvic abscess [Unknown]

NARRATIVE: CASE EVENT DATE: 20190727
